FAERS Safety Report 6851264-6 (Version None)
Quarter: 2010Q3

REPORT INFORMATION
  Report Type: 
  Country: None (occurrence: None)
  Receive Date: 20100717
  Receipt Date: 20080110
  Transmission Date: 20110219
  Serious: No
  Sender: FDA-Public Use
  Company Number: US-PFIZER INC-2008005206

PATIENT
  Sex: Male

DRUGS (6)
  1. CHANTIX [Suspect]
  2. PLAVIX [Concomitant]
  3. VYTORIN [Concomitant]
  4. LISINOPRIL [Concomitant]
  5. METOPROLOL [Concomitant]
  6. ACETYLSALICYLIC ACID [Concomitant]

REACTIONS (1)
  - CHEST PAIN [None]
